FAERS Safety Report 8017645-2 (Version None)
Quarter: 2012Q1

REPORT INFORMATION
  Report Type: 
  Country: None (occurrence: None)
  Receive Date: 20120103
  Receipt Date: 20111220
  Transmission Date: 20120608
  Serious: Yes (Other)
  Sender: FDA-Public Use
  Company Number: FR-JNJFOC-20100502766

PATIENT
  Age: 23 Year
  Sex: Female
  Weight: 50 kg

DRUGS (16)
  1. REMICADE [Suspect]
     Route: 042
     Dates: start: 20090929
  2. REMICADE [Suspect]
     Route: 042
  3. REMICADE [Suspect]
     Dosage: 15TH INFUSION
     Route: 042
     Dates: start: 20110101
  4. REMICADE [Suspect]
     Route: 042
  5. REMICADE [Suspect]
     Route: 042
     Dates: start: 20100601
  6. REMICADE [Suspect]
     Route: 042
     Dates: start: 20091013
  7. REMICADE [Suspect]
     Indication: COLITIS
     Route: 042
  8. REMICADE [Suspect]
     Route: 042
  9. REMICADE [Suspect]
     Dosage: 14TH INFUSION
     Route: 042
     Dates: start: 20111011
  10. REMICADE [Suspect]
     Route: 042
     Dates: start: 20100601
  11. REMICADE [Suspect]
     Dosage: 5TH INFUSION
     Route: 042
     Dates: start: 20100316
  12. REMICADE [Suspect]
     Route: 042
     Dates: start: 20091013
  13. REMICADE [Suspect]
     Indication: CROHN'S DISEASE
     Dosage: 15TH INFUSION
     Route: 042
     Dates: start: 20110101
  14. REMICADE [Suspect]
     Dosage: 14TH INFUSION
     Route: 042
     Dates: start: 20111011
  15. REMICADE [Suspect]
     Dosage: 5TH INFUSION
     Route: 042
     Dates: start: 20100316
  16. REMICADE [Suspect]
     Route: 042
     Dates: start: 20090929

REACTIONS (2)
  - HALLUCINATION, VISUAL [None]
  - HALLUCINATION, AUDITORY [None]
